FAERS Safety Report 20729097 (Version 3)
Quarter: 2022Q3

REPORT INFORMATION
  Report Type: Report from Study
  Country: US (occurrence: US)
  Receive Date: 20220420
  Receipt Date: 20220623
  Transmission Date: 20221027
  Serious: Yes (Other)
  Sender: FDA-Public Use
  Company Number: US-NOVARTISPH-NVSC2022US089881

PATIENT
  Age: 72 Year
  Sex: Female
  Weight: 58.47 kg

DRUGS (1)
  1. PIQRAY [Suspect]
     Active Substance: ALPELISIB
     Indication: Product used for unknown indication
     Dosage: 300 MG, BID (FORMULATION TABLET)
     Route: 048

REACTIONS (8)
  - Lip swelling [Unknown]
  - Dizziness [Unknown]
  - Bell^s palsy [Unknown]
  - Dyspnoea [Unknown]
  - Rash [Unknown]
  - Diabetic coma [Unknown]
  - Eye ulcer [Unknown]
  - Drug hypersensitivity [Unknown]

NARRATIVE: CASE EVENT DATE: 20220308
